FAERS Safety Report 5102221-1 (Version None)
Quarter: 2006Q3

REPORT INFORMATION
  Report Type: 
  Country: None (occurrence: None)
  Receive Date: 20060912
  Receipt Date: 20060829
  Transmission Date: 20061208
  Serious: Yes (Hospitalization)
  Sender: FDA-Public Use
  Company Number: FRWYE798529AUG06

PATIENT
  Age: 35 Year
  Sex: Female
  Weight: 63 kg

DRUGS (5)
  1. ENBREL [Suspect]
     Indication: ANKYLOSING SPONDYLITIS
     Route: 058
     Dates: start: 20060512, end: 20060526
  2. TRAMADOL HCL [Concomitant]
     Dosage: UNKNOWN
  3. NEURONTIN [Concomitant]
     Dosage: UNKNOWN
     Route: 048
  4. MYOLASTAN [Concomitant]
     Dosage: UNKNOWN
     Route: 048
  5. RIFINAH [Concomitant]
     Dosage: UNKNOWN
     Route: 048

REACTIONS (3)
  - ASTHENIA [None]
  - DYSPNOEA [None]
  - TACHYCARDIA [None]
